FAERS Safety Report 9028115 (Version 2)
Quarter: 2013Q2

REPORT INFORMATION
  Report Type: Spontaneous
  Country: US (occurrence: US)
  Receive Date: 20130123
  Receipt Date: 20130405
  Transmission Date: 20140414
  Serious: Yes (Life-Threatening, Hospitalization, Disabling)
  Sender: FDA-Public Use
  Company Number: US-BAYER-2013-007445

PATIENT
  Age: 49 Year
  Sex: Female

DRUGS (12)
  1. YAZ [Suspect]
  2. BEYAZ [Suspect]
  3. YASMIN [Suspect]
  4. OCELLA [Suspect]
  5. AMITRIPTYLINE HCL [Concomitant]
     Dosage: 50 MG, HS
     Route: 048
  6. FAMOTIDINE [Concomitant]
     Dosage: 20 MG, HS
     Route: 048
  7. PANTOPRAZOLE [Concomitant]
     Dosage: 40 MG, BID 1 HOUR BEFORE MEAL
     Route: 048
  8. SUCRALFATE [Concomitant]
     Dosage: 1 G, BEFORE MEAL HS
  9. IBUPROFEN [Concomitant]
     Dosage: 800 MG, DAILY
  10. HYDROCODONE W/ACETAMINOPHEN [Concomitant]
     Dosage: 7.5-650, 1 TABLET EVERY 4-6 HOURS
     Route: 048
  11. FLUZONE [Concomitant]
     Dosage: 0.5 ML, UNK
     Dates: start: 20111016
  12. MOTRIN [Concomitant]

REACTIONS (9)
  - Embolism venous [None]
  - Pulmonary embolism [None]
  - Injury [None]
  - Pain [None]
  - General physical health deterioration [None]
  - Anxiety [None]
  - Anhedonia [None]
  - Pain [None]
  - Emotional distress [None]
